FAERS Safety Report 13068436 (Version 1)
Quarter: 2016Q4

REPORT INFORMATION
  Report Type: Spontaneous
  Country: DE (occurrence: DE)
  Receive Date: 20161228
  Receipt Date: 20161228
  Transmission Date: 20170207
  Serious: Yes (Other)
  Sender: FDA-Public Use
  Company Number: DE-GLAXOSMITHKLINE-DE2016GSK124481

PATIENT
  Age: 49 Year
  Sex: Female
  Weight: 58 kg

DRUGS (5)
  1. BEROTEC DA [Concomitant]
     Indication: ASTHMA
     Dosage: UNK, PRN
     Route: 055
     Dates: start: 1997
  2. SINGULAIR [Concomitant]
     Active Substance: MONTELUKAST SODIUM
     Indication: ASTHMA
     Dosage: 10 MG, QD
     Route: 048
     Dates: start: 2011
  3. NUCALA [Suspect]
     Active Substance: MEPOLIZUMAB
     Indication: ASTHMA
     Dosage: UNK
     Route: 058
     Dates: start: 20160613
  4. VIANI FORTE [Concomitant]
     Active Substance: FLUTICASONE PROPIONATE\SALMETEROL XINAFOATE
     Indication: ASTHMA
     Dosage: 1 PUFF(S), BID
     Route: 055
     Dates: start: 2006
  5. SPIRIVA RESPIMAT [Concomitant]
     Active Substance: TIOTROPIUM BROMIDE
     Indication: ASTHMA
     Dosage: UNK
     Route: 055
     Dates: start: 2015

REACTIONS (9)
  - Musculoskeletal stiffness [Not Recovered/Not Resolved]
  - Erythema [Unknown]
  - Myalgia [Unknown]
  - Upper respiratory tract infection [Unknown]
  - Dysphagia [Unknown]
  - Arthralgia [Not Recovered/Not Resolved]
  - Lymphadenopathy [Unknown]
  - Systemic lupus erythematosus [Unknown]
  - Hyperthermia [Unknown]

NARRATIVE: CASE EVENT DATE: 201606
